FAERS Safety Report 25075202 (Version 1)
Quarter: 2025Q1

REPORT INFORMATION
  Report Type: Spontaneous
  Country: FR (occurrence: FR)
  Receive Date: 20250313
  Receipt Date: 20250313
  Transmission Date: 20250409
  Serious: Yes (Death, Hospitalization)
  Sender: IMMUNOCORE
  Company Number: FR-IMMUNOCORE, LTD-2025-IMC-003760

PATIENT

DRUGS (1)
  1. TEBENTAFUSP [Suspect]
     Active Substance: TEBENTAFUSP
     Indication: Metastatic ocular melanoma
     Route: 042
     Dates: start: 20241216

REACTIONS (1)
  - Cytokine release syndrome [Fatal]
